FAERS Safety Report 25968569 (Version 3)
Quarter: 2025Q4

REPORT INFORMATION
  Report Type: Spontaneous
  Country: JP (occurrence: JP)
  Receive Date: 20251028
  Receipt Date: 20251217
  Transmission Date: 20260118
  Serious: Yes (Hospitalization, Other)
  Sender: DAIICHI
  Company Number: JP-DSJP-DS-2025-172055-JP

PATIENT
  Age: 64 Year
  Sex: Female
  Weight: 48 kg

DRUGS (25)
  1. DATROWAY [Suspect]
     Active Substance: DATOPOTAMAB DERUXTECAN-DLNK
     Indication: Hormone receptor positive HER2 negative breast cancer
     Dosage: 6 MG/KG, ONCE EVERY 3 WK
     Route: 041
     Dates: start: 20250730, end: 20250730
  2. DATROWAY [Suspect]
     Active Substance: DATOPOTAMAB DERUXTECAN-DLNK
     Dosage: 6 MG/KG, ONCE EVERY 3 WK
     Route: 041
     Dates: start: 20250819, end: 20250819
  3. DATROWAY [Suspect]
     Active Substance: DATOPOTAMAB DERUXTECAN-DLNK
     Dosage: 6 MG/KG, ONCE EVERY 3 WK
     Route: 041
     Dates: start: 20250909, end: 20250909
  4. DATROWAY [Suspect]
     Active Substance: DATOPOTAMAB DERUXTECAN-DLNK
     Dosage: 6 MG/KG, ONCE EVERY 3 WK
     Route: 041
     Dates: start: 20250930, end: 20250930
  5. DATROWAY [Suspect]
     Active Substance: DATOPOTAMAB DERUXTECAN-DLNK
     Dosage: 6 MG/KG, ONCE EVERY 3 WK
     Route: 041
     Dates: start: 20251021, end: 20251021
  6. AVASTIN [Suspect]
     Active Substance: BEVACIZUMAB
     Indication: Hormone receptor positive HER2 negative breast cancer
     Dosage: 550 MG
     Route: 042
     Dates: start: 20171115, end: 201904
  7. AVASTIN [Suspect]
     Active Substance: BEVACIZUMAB
     Dosage: 550 MG
     Route: 042
     Dates: start: 20221102, end: 202305
  8. AVASTIN [Suspect]
     Active Substance: BEVACIZUMAB
     Dosage: 550 MG
     Route: 042
     Dates: start: 20240910, end: 20250318
  9. PACLITAXEL [Suspect]
     Active Substance: PACLITAXEL
     Indication: Hormone receptor positive HER2 negative breast cancer
     Dosage: 108 MG
     Route: 042
     Dates: start: 20171115, end: 201904
  10. PACLITAXEL [Suspect]
     Active Substance: PACLITAXEL
     Dosage: 108 MG
     Route: 042
     Dates: start: 20221102, end: 202305
  11. PACLITAXEL [Suspect]
     Active Substance: PACLITAXEL
     Dosage: 108 MG
     Route: 042
     Dates: start: 20240910, end: 20250318
  12. DEXAMETHASONE SODIUM PHOSPHATE [Concomitant]
     Active Substance: DEXAMETHASONE SODIUM PHOSPHATE
     Indication: Product used for unknown indication
     Dosage: 6.6MG
     Route: 042
     Dates: start: 20250730, end: 20251021
  13. POLARAMINE [Concomitant]
     Active Substance: DEXCHLORPHENIRAMINE MALEATE
     Indication: Product used for unknown indication
     Dosage: 5MG
     Route: 042
     Dates: start: 20250730, end: 20251021
  14. PALONOSETRON HYDROCHLORIDE [Concomitant]
     Active Substance: PALONOSETRON HYDROCHLORIDE
     Indication: Product used for unknown indication
     Dosage: 0.75MG
     Route: 042
     Dates: start: 20250730, end: 20251021
  15. AMMONIUM GLYCYRRHIZATE\GLYCINE\RACEMETHIONINE [Concomitant]
     Active Substance: AMMONIUM GLYCYRRHIZATE\GLYCINE\RACEMETHIONINE
     Indication: Chronic hepatitis
     Dosage: UNK, 6 TMS EVERY 1D
     Route: 048
     Dates: start: 201809
  16. SPIRONOLACTONE [Concomitant]
     Active Substance: SPIRONOLACTONE
     Indication: Product used for unknown indication
     Dosage: 25 MG, BID
     Route: 048
     Dates: start: 202411
  17. URSODIOL [Concomitant]
     Active Substance: URSODIOL
     Indication: Product used for unknown indication
     Dosage: 100 MG, 6 TMS EVERY 1D
     Route: 048
     Dates: start: 201809
  18. MAGNESIUM OXIDE [Concomitant]
     Active Substance: MAGNESIUM OXIDE
     Indication: Product used for unknown indication
     Dosage: 330 MG, TID
     Route: 048
     Dates: start: 20250730
  19. APREPITANT [Concomitant]
     Active Substance: APREPITANT
     Indication: Product used for unknown indication
     Dosage: 125 MG, QD
     Route: 048
     Dates: start: 20250730, end: 20250730
  20. APREPITANT [Concomitant]
     Active Substance: APREPITANT
     Dosage: 205 MG, QD
     Route: 048
     Dates: start: 20250731, end: 20251021
  21. APREPITANT [Concomitant]
     Active Substance: APREPITANT
     Dosage: 80 MG, QD
     Route: 048
     Dates: start: 20251022, end: 20251023
  22. DECADRON [Concomitant]
     Active Substance: DEXAMETHASONE
     Indication: Product used for unknown indication
     Dosage: 4 MG, BID
     Route: 048
     Dates: start: 20250731, end: 20251023
  23. EBRANTIL KAKEN [Concomitant]
     Indication: Urinary retention
     Dosage: 15 MG, BID
     Route: 048
     Dates: start: 20250626
  24. BISOPROLOL [Concomitant]
     Active Substance: BISOPROLOL
     Indication: Arrhythmia
     Dosage: 1 MG, QD
     Dates: start: 202306
  25. FUROSEMIDE [Concomitant]
     Active Substance: FUROSEMIDE
     Indication: Product used for unknown indication
     Dosage: 20 MG, BID
     Route: 048
     Dates: start: 202411

REACTIONS (1)
  - Urinary bladder rupture [Recovering/Resolving]

NARRATIVE: CASE EVENT DATE: 20251023
